FAERS Safety Report 10216646 (Version 6)
Quarter: 2014Q3

REPORT INFORMATION
  Report Type: Spontaneous
  Country: US (occurrence: US)
  Receive Date: 20140604
  Receipt Date: 20140804
  Transmission Date: 20150326
  Serious: No
  Sender: FDA-Public Use
  Company Number: US-PFIZER INC-2014141835

PATIENT
  Age: 56 Year
  Sex: Male
  Weight: 88.44 kg

DRUGS (3)
  1. LYRICA [Suspect]
     Active Substance: PREGABALIN
     Indication: NEUROPATHY PERIPHERAL
     Dosage: 200 MG, 3X/DAY
     Dates: start: 2014
  2. ATENOLOL. [Concomitant]
     Active Substance: ATENOLOL
     Indication: BLOOD PRESSURE ABNORMAL
     Dosage: 50 MG, DAILY
  3. LYRICA [Suspect]
     Active Substance: PREGABALIN
     Indication: NEURALGIA
     Dosage: 100 MG, 3X/DAY
     Route: 048
     Dates: start: 20140516

REACTIONS (7)
  - Oedema peripheral [Unknown]
  - Oedema [Unknown]
  - Gait disturbance [Unknown]
  - Joint swelling [Unknown]
  - Drug ineffective [Unknown]
  - Peripheral swelling [Unknown]
  - Tobacco user [Unknown]

NARRATIVE: CASE EVENT DATE: 2014
